FAERS Safety Report 4314577-8 (Version None)
Quarter: 2004Q1

REPORT INFORMATION
  Report Type: 
  Country: None (occurrence: None)
  Receive Date: 20040308
  Receipt Date: 20040227
  Transmission Date: 20041129
  Serious: Yes (Disabling)
  Sender: FDA-Public Use
  Company Number: 2003GB03372

PATIENT
  Age: 74 Year
  Sex: Female

DRUGS (4)
  1. NOLVADEX [Suspect]
     Indication: BREAST CANCER
     Dosage: 20 MG QD PO
     Route: 048
     Dates: start: 19980210
  2. LANSOPRAZOLE [Concomitant]
  3. COLPERMIN [Concomitant]
  4. LOSARTAN [Concomitant]

REACTIONS (1)
  - ANKLE FRACTURE [None]
